FAERS Safety Report 12115084 (Version 1)
Quarter: 2016Q1

REPORT INFORMATION
  Report Type: Spontaneous
  Country: US (occurrence: US)
  Receive Date: 20160225
  Receipt Date: 20160225
  Transmission Date: 20160526
  Serious: No
  Sender: FDA-Public Use
  Company Number: US-LEO PHARMA-240364

PATIENT
  Age: 57 Year
  Sex: Female

DRUGS (2)
  1. PICATO [Suspect]
     Active Substance: INGENOL MEBUTATE
     Indication: PRODUCT USED FOR UNKNOWN INDICATION
     Route: 061
     Dates: start: 20160219, end: 20160221
  2. PICATO [Suspect]
     Active Substance: INGENOL MEBUTATE
     Route: 061
     Dates: start: 20160219, end: 20160220

REACTIONS (9)
  - Application site pain [Recovering/Resolving]
  - Application site discharge [Not Recovered/Not Resolved]
  - Application site swelling [Not Recovered/Not Resolved]
  - Application site pruritus [Not Recovered/Not Resolved]
  - Application site dryness [Not Recovered/Not Resolved]
  - Application site pain [Not Recovered/Not Resolved]
  - Application site scab [Not Recovered/Not Resolved]
  - Eye swelling [Unknown]
  - Drug administered at inappropriate site [Unknown]

NARRATIVE: CASE EVENT DATE: 20160220
